FAERS Safety Report 25013453 (Version 1)
Quarter: 2025Q1

REPORT INFORMATION
  Report Type: Spontaneous
  Country: US (occurrence: US)
  Receive Date: 20250226
  Receipt Date: 20250226
  Transmission Date: 20250408
  Serious: No
  Sender: UCB
  Company Number: US-UCBSA-2024015991

PATIENT
  Sex: Female

DRUGS (17)
  1. LEVETIRACETAM [Suspect]
     Active Substance: LEVETIRACETAM
     Indication: Cyclic vomiting syndrome
  2. LEVETIRACETAM [Suspect]
     Active Substance: LEVETIRACETAM
     Indication: Sarcoidosis
  3. LEVETIRACETAM [Suspect]
     Active Substance: LEVETIRACETAM
     Indication: Off label use
  4. SUMATRIPTAN [Concomitant]
     Active Substance: SUMATRIPTAN
     Indication: Cyclic vomiting syndrome
  5. SUMATRIPTAN [Concomitant]
     Active Substance: SUMATRIPTAN
     Indication: Sarcoidosis
  6. AMITRIPTYLINE [Concomitant]
     Active Substance: AMITRIPTYLINE
     Indication: Cyclic vomiting syndrome
  7. AMITRIPTYLINE [Concomitant]
     Active Substance: AMITRIPTYLINE
     Indication: Sarcoidosis
  8. COENZYME Q10 [Concomitant]
     Active Substance: DIETARY SUPPLEMENT\UBIDECARENONE
     Indication: Cyclic vomiting syndrome
  9. COENZYME Q10 [Concomitant]
     Active Substance: DIETARY SUPPLEMENT\UBIDECARENONE
     Indication: Sarcoidosis
  10. TOPIRAMATE [Concomitant]
     Active Substance: TOPIRAMATE
     Indication: Cyclic vomiting syndrome
  11. TOPIRAMATE [Concomitant]
     Active Substance: TOPIRAMATE
     Indication: Sarcoidosis
  12. METOCLOPRAMIDE [Concomitant]
     Active Substance: METOCLOPRAMIDE
     Indication: Cyclic vomiting syndrome
  13. METOCLOPRAMIDE [Concomitant]
     Active Substance: METOCLOPRAMIDE
     Indication: Sarcoidosis
  14. DRONABINOL [Concomitant]
     Active Substance: DRONABINOL
     Indication: Cyclic vomiting syndrome
  15. DRONABINOL [Concomitant]
     Active Substance: DRONABINOL
     Indication: Sarcoidosis
  16. OLANZAPINE [Concomitant]
     Active Substance: OLANZAPINE
     Indication: Cyclic vomiting syndrome
  17. OLANZAPINE [Concomitant]
     Active Substance: OLANZAPINE
     Indication: Sarcoidosis

REACTIONS (2)
  - Drug ineffective for unapproved indication [Unknown]
  - Off label use [Unknown]
